APPROVED DRUG PRODUCT: ZOLMITRIPTAN
Active Ingredient: ZOLMITRIPTAN
Strength: 5MG
Dosage Form/Route: TABLET;ORAL
Application: A203476 | Product #002
Applicant: SUN PHARMA GLOBAL FZE
Approved: Nov 13, 2014 | RLD: No | RS: No | Type: DISCN